FAERS Safety Report 18020743 (Version 2)
Quarter: 2020Q3

REPORT INFORMATION
  Report Type: Spontaneous
  Country: US (occurrence: US)
  Receive Date: 20200714
  Receipt Date: 20200730
  Transmission Date: 20201103
  Serious: Yes (Other)
  Sender: FDA-Public Use
  Company Number: US-KARYOPHARM THERAPEUTICS, INC.-2020KPT000727

PATIENT

DRUGS (2)
  1. VARUBI [Concomitant]
     Active Substance: ROLAPITANT
     Indication: PLASMA CELL MYELOMA
     Dosage: 180 MG DAY 1 AND 15
     Route: 048
     Dates: start: 20200623
  2. XPOVIO [Suspect]
     Active Substance: SELINEXOR
     Indication: PLASMA CELL MYELOMA
     Dosage: 80 MG, 2X/WEEK
     Route: 048
     Dates: start: 20200623, end: 202007

REACTIONS (10)
  - Pericardial effusion [Unknown]
  - Full blood count decreased [Unknown]
  - Nasal congestion [Unknown]
  - Renal function test abnormal [Unknown]
  - Laboratory test abnormal [Unknown]
  - Cough [Unknown]
  - Pleural effusion [Unknown]
  - Asthenia [Unknown]
  - Fatigue [Unknown]
  - Dyspnoea [Unknown]

NARRATIVE: CASE EVENT DATE: 202006
